FAERS Safety Report 5258575-9 (Version None)
Quarter: 2007Q1

REPORT INFORMATION
  Report Type: 
  Country: None (occurrence: None)
  Receive Date: 20070308
  Receipt Date: 20070301
  Transmission Date: 20070707
  Serious: Yes (Hospitalization)
  Sender: FDA-Public Use
  Company Number: FR-AVENTIS-200710807FR

PATIENT
  Sex: Female

DRUGS (1)
  1. ARAVA [Suspect]
     Indication: RHEUMATOID ARTHRITIS
     Route: 048
     Dates: start: 20060101, end: 20070101

REACTIONS (6)
  - C-REACTIVE PROTEIN INCREASED [None]
  - DYSGLOBULINAEMIA [None]
  - GENERAL PHYSICAL HEALTH DETERIORATION [None]
  - INFLAMMATION [None]
  - RED BLOOD CELL SEDIMENTATION RATE INCREASED [None]
  - WEIGHT DECREASED [None]
